FAERS Safety Report 23828294 (Version 1)
Quarter: 2024Q2

REPORT INFORMATION
  Report Type: Spontaneous
  Country: RU (occurrence: RU)
  Receive Date: 20240508
  Receipt Date: 20240508
  Transmission Date: 20240716
  Serious: Yes (Death, Life-Threatening, Other)
  Sender: FDA-Public Use
  Company Number: RU-ALXN-202405RUS000224RU

PATIENT
  Age: 20 Year
  Sex: Male
  Weight: 80 kg

DRUGS (1)
  1. ULTOMIRIS [Suspect]
     Active Substance: RAVULIZUMAB-CWVZ
     Indication: Paroxysmal nocturnal haemoglobinuria
     Dosage: 3300 MILLIGRAM, EVERY EIGHT WEEKS
     Route: 041
     Dates: end: 20240421

REACTIONS (1)
  - Death [Fatal]

NARRATIVE: CASE EVENT DATE: 20240503
